FAERS Safety Report 8432031-9 (Version None)
Quarter: 2012Q2

REPORT INFORMATION
  Report Type: 
  Country: None (occurrence: None)
  Receive Date: 20120606
  Receipt Date: 20120528
  Transmission Date: 20120825
  Serious: Yes (Other)
  Sender: FDA-Public Use
  Company Number: AUR-APL-2012-02486

PATIENT
  Age: 26 Year
  Sex: Male

DRUGS (8)
  1. DIVALPROEX SODIUM [Suspect]
     Indication: INSOMNIA
     Dosage: (1500 MG),
  2. DIVALPROEX SODIUM [Suspect]
     Indication: SUICIDAL IDEATION
     Dosage: (1500 MG),
  3. DIVALPROEX SODIUM [Suspect]
     Indication: IRRITABILITY
     Dosage: (1500 MG),
  4. DIVALPROEX SODIUM [Suspect]
     Indication: DELUSION
     Dosage: (1500 MG),
  5. QUETIAPINE FUMARATE [Suspect]
     Indication: IRRITABILITY
     Dosage: 300 MG (100 MG, 1 IN 8 HR), (300 MG) UNKNOWN  (400 MG), UNKNOWN (800 MG), UNKNOWN
  6. QUETIAPINE FUMARATE [Suspect]
     Indication: DELUSION
     Dosage: 300 MG (100 MG, 1 IN 8 HR), (300 MG) UNKNOWN  (400 MG), UNKNOWN (800 MG), UNKNOWN
  7. QUETIAPINE FUMARATE [Suspect]
     Indication: SUICIDAL IDEATION
     Dosage: 300 MG (100 MG, 1 IN 8 HR), (300 MG) UNKNOWN  (400 MG), UNKNOWN (800 MG), UNKNOWN
  8. QUETIAPINE FUMARATE [Suspect]
     Indication: INSOMNIA
     Dosage: 300 MG (100 MG, 1 IN 8 HR), (300 MG) UNKNOWN  (400 MG), UNKNOWN (800 MG), UNKNOWN

REACTIONS (3)
  - DRUG TOLERANCE DECREASED [None]
  - WHITE BLOOD CELL COUNT DECREASED [None]
  - NEUTROPENIA [None]
